FAERS Safety Report 25619440 (Version 1)
Quarter: 2025Q3

REPORT INFORMATION
  Report Type: Spontaneous
  Country: MY (occurrence: MY)
  Receive Date: 20250729
  Receipt Date: 20250729
  Transmission Date: 20251021
  Serious: Yes (Other)
  Sender: PURDUE
  Company Number: MY-NAPPMUNDI-GBR-2025-0127589

PATIENT
  Age: 52 Year
  Sex: Female

DRUGS (1)
  1. OXYCODONE HYDROCHLORIDE [Suspect]
     Active Substance: OXYCODONE HYDROCHLORIDE
     Indication: Pain
     Dosage: 5 MILLIGRAM, Q12H
     Route: 048

REACTIONS (9)
  - Rash maculo-papular [Recovering/Resolving]
  - Pruritus [Recovering/Resolving]
  - Swelling face [Recovering/Resolving]
  - Urticaria [Recovering/Resolving]
  - Target skin lesion [Recovering/Resolving]
  - Lip swelling [Recovering/Resolving]
  - Lip erosion [Recovering/Resolving]
  - Tongue erosion [Recovering/Resolving]
  - Erythema [Recovering/Resolving]
